FAERS Safety Report 10182779 (Version 1)
Quarter: 2014Q2

REPORT INFORMATION
  Report Type: Spontaneous
  Country: IT (occurrence: IT)
  Receive Date: 20140520
  Receipt Date: 20140520
  Transmission Date: 20141212
  Serious: Yes (Hospitalization, Other)
  Sender: FDA-Public Use
  Company Number: IT-WATSON-2014-00681

PATIENT
  Age: 79 Year
  Sex: Male

DRUGS (2)
  1. INDOMETACIN (UNKNOWN) [Suspect]
     Indication: BACK PAIN
     Dosage: 100 MG, DAILY
     Route: 065
  2. LISINOPRIL/HYDROCHLOROTHIAZIDE [Concomitant]
     Indication: HYPERTENSION
     Dosage: 20/12.5 MG, DAILY
     Route: 065
     Dates: start: 1996

REACTIONS (1)
  - Portal vein thrombosis [Recovered/Resolved]
